FAERS Safety Report 18529843 (Version 1)
Quarter: 2020Q4

REPORT INFORMATION
  Report Type: Spontaneous
  Country: US (occurrence: US)
  Receive Date: 20201120
  Receipt Date: 20201120
  Transmission Date: 20210114
  Serious: No
  Sender: FDA-Public Use
  Company Number: US-009507513-2011USA004580

PATIENT
  Age: 6 Year
  Sex: Female

DRUGS (1)
  1. INTEGRILIN [Suspect]
     Active Substance: EPTIFIBATIDE
     Indication: THERAPEUTIC EMBOLISATION

REACTIONS (2)
  - Product use issue [Unknown]
  - Product use in unapproved indication [Unknown]
